FAERS Safety Report 7680026-5 (Version None)
Quarter: 2011Q3

REPORT INFORMATION
  Report Type: 
  Country: None (occurrence: None)
  Receive Date: 20110805
  Receipt Date: 20110729
  Transmission Date: 20111222
  Serious: Yes (Other)
  Sender: FDA-Public Use
  Company Number: DSA_47335_2011

PATIENT
  Age: 53 Year
  Sex: Female

DRUGS (2)
  1. WELLBUTRIN [Suspect]
     Indication: SMOKING CESSATION THERAPY
     Dosage: (DF)
  2. NICOTINE [Suspect]
     Indication: SMOKING CESSATION THERAPY
     Dosage: DF TRANDERMAL
     Route: 062

REACTIONS (7)
  - TIC [None]
  - NAUSEA [None]
  - INSOMNIA [None]
  - ANXIETY [None]
  - SUICIDAL IDEATION [None]
  - PRURITUS GENERALISED [None]
  - NERVOUSNESS [None]
